FAERS Safety Report 19386263 (Version 1)
Quarter: 2021Q2

REPORT INFORMATION
  Report Type: Spontaneous
  Country: US (occurrence: US)
  Receive Date: 20210605
  Receipt Date: 20210605
  Transmission Date: 20210717
  Serious: Yes (Other)
  Sender: FDA-Public Use
  Company Number: None

PATIENT
  Age: 58 Year
  Sex: Female
  Weight: 63.9 kg

DRUGS (4)
  1. VERZENIO [Suspect]
     Active Substance: ABEMACICLIB
     Indication: NEOPLASM MALIGNANT
     Dates: start: 20210214, end: 20210216
  2. OMEGA 3 [Concomitant]
     Active Substance: OMEGA-3 FATTY ACIDS
  3. VITAMIN D AND K [Concomitant]
  4. MULTIVITAMIN WITH BIOTIN [Concomitant]

REACTIONS (7)
  - Middle insomnia [None]
  - Sensory disturbance [None]
  - Angina pectoris [None]
  - Pain [None]
  - Thrombosis [None]
  - Screaming [None]
  - Feeling abnormal [None]

NARRATIVE: CASE EVENT DATE: 20210216
